FAERS Safety Report 11326670 (Version 3)
Quarter: 2016Q2

REPORT INFORMATION
  Report Type: Spontaneous
  Country: US (occurrence: US)
  Receive Date: 20150731
  Receipt Date: 20160413
  Transmission Date: 20160815
  Serious: Yes (Hospitalization)
  Sender: FDA-Public Use
  Company Number: US-AUROBINDO-AUR-APL-2015-06372

PATIENT
  Age: 77 Year
  Sex: Female

DRUGS (14)
  1. PROPOFOL. [Concomitant]
     Active Substance: PROPOFOL
     Indication: MUSCLE SPASTICITY
  2. HYDROMORPHONE [Concomitant]
     Active Substance: HYDROMORPHONE
     Indication: PRODUCT USED FOR UNKNOWN INDICATION
     Dosage: 0.1 MG, UNK
     Route: 042
  3. NEOSTIGMINE [Concomitant]
     Active Substance: NEOSTIGMINE
     Indication: NEUROMUSCULAR BLOCKADE REVERSAL
     Dosage: 3.5 MG, UNK
     Route: 042
  4. ONDANSETRON. [Suspect]
     Active Substance: ONDANSETRON
     Indication: PROPHYLAXIS OF NAUSEA AND VOMITING
     Dosage: 4 MG, UNK
     Route: 042
  5. ROCURONIUM [Concomitant]
     Active Substance: ROCURONIUM BROMIDE
     Indication: ENDOTRACHEAL INTUBATION
     Dosage: 40 MG, UNK
     Route: 065
  6. LISINOPRIL. [Concomitant]
     Active Substance: LISINOPRIL
     Indication: PRODUCT USED FOR UNKNOWN INDICATION
     Route: 065
  7. ATENOLOL. [Concomitant]
     Active Substance: ATENOLOL
     Indication: PRODUCT USED FOR UNKNOWN INDICATION
     Route: 065
  8. LIDOCAINE. [Concomitant]
     Active Substance: LIDOCAINE
     Indication: ANAESTHESIA
     Dosage: 100 MG, UNK
     Route: 042
  9. ISOFLURANE. [Concomitant]
     Active Substance: ISOFLURANE
     Indication: ANAESTHESIA
     Dosage: 0.7-1.0 PERCENT IN 40 PERCENT OXYGEN
     Route: 065
  10. CEFAZOLIN [Concomitant]
     Active Substance: CEFAZOLIN
     Indication: PRODUCT USED FOR UNKNOWN INDICATION
     Route: 065
  11. CITALOPRAM [Concomitant]
     Active Substance: CITALOPRAM HYDROBROMIDE
     Indication: PRODUCT USED FOR UNKNOWN INDICATION
     Route: 065
  12. FENTANYL. [Concomitant]
     Active Substance: FENTANYL
     Indication: ANAESTHESIA
     Dosage: 50 ?G, UNK
     Route: 042
  13. PROPOFOL. [Concomitant]
     Active Substance: PROPOFOL
     Indication: ANAESTHESIA
     Dosage: 130 MG, UNK
     Route: 042
  14. GLYCOPYRROLATE                     /00196201/ [Concomitant]
     Active Substance: GLYCOPYRRONIUM
     Indication: NEUROMUSCULAR BLOCKADE REVERSAL
     Dosage: 0.6 MG, UNK
     Route: 042

REACTIONS (6)
  - Hypopnoea [Recovered/Resolved]
  - Dystonia [Recovered/Resolved]
  - Irregular breathing [Recovered/Resolved]
  - Apnoea [Recovered/Resolved]
  - Muscle spasticity [Recovered/Resolved]
  - Blood pressure systolic increased [Recovered/Resolved]
